FAERS Safety Report 10233200 (Version 1)
Quarter: 2014Q2

REPORT INFORMATION
  Report Type: Spontaneous
  Country: AU (occurrence: None)
  Receive Date: 20140610
  Receipt Date: 20140610
  Transmission Date: 20141212
  Serious: Yes (Life-Threatening, Hospitalization, Other)
  Sender: FDA-Public Use
  Company Number: AUR-APL-2014-06174

PATIENT
  Sex: Male
  Weight: 2.55 kg

DRUGS (3)
  1. QUETIAPINE (QUETIAPINE) [Suspect]
     Indication: PRODUCT USED FOR UNKNOWN INDICATION
     Dosage: 1 D
     Route: 064
  2. CALCIUM (CALCIUM) [Concomitant]
  3. BLACKMORES PREGNANCY + BREAST-FEEDING FORMULA (FISH OIL W/MINERALS NOS/VITAMINS NOS) [Concomitant]

REACTIONS (9)
  - Forceps delivery [None]
  - Premature baby [None]
  - Periorbital contusion [None]
  - Foetal distress syndrome [None]
  - Foetal heart rate decreased [None]
  - Foetal distress syndrome [None]
  - Premature baby [None]
  - Neonatal respiratory distress syndrome [None]
  - Maternal drugs affecting foetus [None]
